FAERS Safety Report 7910910-6 (Version None)
Quarter: 2011Q4

REPORT INFORMATION
  Report Type: 
  Country: None (occurrence: None)
  Receive Date: 20111114
  Receipt Date: 20111031
  Transmission Date: 20120403
  Serious: No
  Sender: FDA-Public Use
  Company Number: US-BIOGENIDEC-2011BI041712

PATIENT
  Age: 54 Year
  Sex: Female

DRUGS (4)
  1. TYSABRI [Suspect]
     Route: 042
     Dates: start: 20100420, end: 20100923
  2. TYSABRI [Suspect]
     Route: 042
     Dates: end: 20050201
  3. TYSABRI [Suspect]
     Indication: MULTIPLE SCLEROSIS
     Route: 042
     Dates: start: 20110222
  4. AVONEX [Concomitant]
     Route: 030
     Dates: start: 20101209

REACTIONS (7)
  - ABDOMINAL DISCOMFORT [None]
  - OROPHARYNGEAL PAIN [None]
  - DYSPHAGIA [None]
  - MALAISE [None]
  - NASOPHARYNGITIS [None]
  - LYMPHADENOPATHY [None]
  - LARYNGITIS [None]
